FAERS Safety Report 4303301-0 (Version None)
Quarter: 2004Q1

REPORT INFORMATION
  Report Type: 
  Country: None (occurrence: None)
  Receive Date: 20040223
  Receipt Date: 20040213
  Transmission Date: 20041129
  Serious: Yes (Hospitalization, Disabling, Other)
  Sender: FDA-Public Use
  Company Number: 2004199645GB

PATIENT
  Age: 25 Year
  Sex: Female

DRUGS (2)
  1. FRAGMIN [Suspect]
     Indication: DEEP VEIN THROMBOSIS
     Dosage: SUBCUTANEOUS
     Route: 058
     Dates: start: 20031001, end: 20040113
  2. HEROIN (DIAMORPHINE) [Concomitant]

REACTIONS (5)
  - ARTHRALGIA [None]
  - HENOCH-SCHONLEIN PURPURA [None]
  - MEDICATION ERROR [None]
  - MOBILITY DECREASED [None]
  - MYALGIA [None]
